FAERS Safety Report 7205144-7 (Version None)
Quarter: 2010Q4

REPORT INFORMATION
  Report Type: 
  Country: None (occurrence: None)
  Receive Date: 20101231
  Receipt Date: 20101223
  Transmission Date: 20110411
  Serious: Yes (Hospitalization)
  Sender: FDA-Public Use
  Company Number: US-BIOGENIDEC-2010BI027051

PATIENT
  Age: 36 Year
  Sex: Female
  Weight: 107 kg

DRUGS (5)
  1. TYSABRI [Suspect]
     Indication: MULTIPLE SCLEROSIS
     Route: 042
     Dates: start: 20090226
  2. AMBIEN [Concomitant]
     Indication: INSOMNIA
     Dates: start: 20010101
  3. CYMBALTA [Concomitant]
     Indication: PAIN
     Dates: start: 20090101
  4. DIAZEPAM [Concomitant]
     Indication: MUSCLE SPASMS
     Dates: start: 19960101
  5. BACLOFEN [Concomitant]
     Indication: MUSCLE SPASMS
     Dates: start: 19990101

REACTIONS (15)
  - ACUTE CORONARY SYNDROME [None]
  - ACUTE RESPIRATORY FAILURE [None]
  - CARDIAC DISORDER [None]
  - CONTUSION [None]
  - DEHYDRATION [None]
  - FOOT FRACTURE [None]
  - HEPATITIS FULMINANT [None]
  - MIGRAINE [None]
  - MULTI-ORGAN FAILURE [None]
  - MULTIPLE SCLEROSIS RELAPSE [None]
  - PAIN [None]
  - PNEUMONIA VIRAL [None]
  - RENAL FAILURE ACUTE [None]
  - THROMBOCYTOPENIA [None]
  - VIITH NERVE PARALYSIS [None]
